FAERS Safety Report 6096852-2 (Version None)
Quarter: 2009Q1

REPORT INFORMATION
  Report Type: 
  Country: None (occurrence: None)
  Receive Date: 20090225
  Receipt Date: 20090225
  Transmission Date: 20090719
  Serious: No
  Sender: FDA-Public Use
  Company Number: None

PATIENT
  Sex: Female
  Weight: 55.3388 kg

DRUGS (2)
  1. ALENDRONATE SODIUM [Suspect]
     Indication: OSTEOPOROSIS
     Dosage: 70M 1 TAB WEEKLY ORAL
     Route: 048
     Dates: start: 20090120
  2. ALENDRONATE SODIUM [Suspect]
     Indication: OSTEOPOROSIS
     Dosage: 70M 1 TAB WEEKLY ORAL
     Route: 048
     Dates: start: 20090127

REACTIONS (1)
  - BONE PAIN [None]
